FAERS Safety Report 18173051 (Version 1)
Quarter: 2020Q3

REPORT INFORMATION
  Report Type: Spontaneous
  Country: US (occurrence: US)
  Receive Date: 20200820
  Receipt Date: 20200820
  Transmission Date: 20201103
  Serious: No
  Sender: FDA-Public Use
  Company Number: US-AUROBINDO-AUR-APL-2020-013757

PATIENT
  Sex: Male
  Weight: 92.98 kg

DRUGS (1)
  1. BELEODAQ [Suspect]
     Active Substance: BELINOSTAT
     Indication: T-CELL LYMPHOMA
     Dosage: UNK
     Route: 042
     Dates: start: 20200302

REACTIONS (1)
  - Peripheral swelling [Unknown]
